FAERS Safety Report 5508084-4 (Version None)
Quarter: 2007Q4

REPORT INFORMATION
  Report Type: 
  Country: None (occurrence: None)
  Receive Date: 20071031
  Receipt Date: 20070713
  Transmission Date: 20080405
  Serious: No
  Sender: FDA-Public Use
  Company Number: 200610204BWH

PATIENT
  Sex: Male
  Weight: 83.0083 kg

DRUGS (4)
  1. SORAFENIB [Suspect]
     Indication: METASTATIC RENAL CELL CARCINOMA
     Dosage: 400 MG, BID, ORAL;  200 MG, QD, ORAL
     Route: 048
     Dates: start: 20051201
  2. MORPHINE [Concomitant]
  3. ASPIRIN [Concomitant]
  4. VICODIN [Concomitant]

REACTIONS (5)
  - ANOREXIA [None]
  - DIARRHOEA [None]
  - DRY SKIN [None]
  - INFLUENZA LIKE ILLNESS [None]
  - RASH [None]
